FAERS Safety Report 8030135-6 (Version None)
Quarter: 2011Q4

REPORT INFORMATION
  Report Type: 
  Country: None (occurrence: None)
  Receive Date: 20111130
  Receipt Date: 20110622
  Transmission Date: 20120403
  Serious: Yes (Hospitalization, Other)
  Sender: FDA-Public Use
  Company Number: US201002003677

PATIENT
  Sex: Female
  Weight: 106.6 kg

DRUGS (13)
  1. EXENATIDE UNK STRENGTH PEN, DISPOSABLE DEVCIE (EXENATIDE PEN (UNKNOWN [Concomitant]
  2. TORSEMIDE [Concomitant]
  3. SPIRONOLACTONE [Concomitant]
  4. LANTUS [Concomitant]
  5. ISENTRESS [Concomitant]
  6. METFORMIN HCL [Concomitant]
  7. TYLENOL /SCH/ (PARACETAMOL) [Concomitant]
  8. INTELENCE (ETRAVIRINE) [Concomitant]
  9. TRUVADA (EMTRICITABINE, TENOFOVOR DISOPROXIL FUMARATE) [Concomitant]
  10. NOVOLOG [Concomitant]
  11. WELLBUTRIN [Concomitant]
  12. BYETTA [Suspect]
     Dates: start: 20061001, end: 20090201
  13. LIPITOR [Concomitant]

REACTIONS (3)
  - OFF LABEL USE [None]
  - CHOLELITHIASIS [None]
  - PANCREATITIS [None]
